FAERS Safety Report 7187066-3 (Version None)
Quarter: 2010Q4

REPORT INFORMATION
  Report Type: 
  Country: None (occurrence: None)
  Receive Date: 20101222
  Receipt Date: 20101214
  Transmission Date: 20110411
  Serious: Yes (Other)
  Sender: FDA-Public Use
  Company Number: DE-AMGEN-DEUSP2010007517

PATIENT

DRUGS (5)
  1. NEUPOGEN [Suspect]
     Indication: NEUTROPENIA
     Dosage: 6 MG, UNK
     Dates: start: 20100909
  2. NEULASTA [Suspect]
     Indication: NEUTROPENIA
     Dosage: UNK
     Dates: start: 20100909
  3. VINORELBINE [Concomitant]
     Dosage: UNK
     Dates: start: 20100801
  4. GRANOCYTE                          /01003403/ [Concomitant]
     Dosage: UNK
     Dates: start: 20100911
  5. FILGRASTIM [Concomitant]
     Dosage: UNK
     Dates: start: 20100930

REACTIONS (2)
  - CARBOHYDRATE ANTIGEN 15-3 INCREASED [None]
  - WHITE BLOOD CELL COUNT DECREASED [None]
